FAERS Safety Report 12008073 (Version 2)
Quarter: 2016Q4

REPORT INFORMATION
  Report Type: Spontaneous
  Country: US (occurrence: US)
  Receive Date: 20160205
  Receipt Date: 20161114
  Transmission Date: 20170206
  Serious: No
  Sender: FDA-Public Use
  Company Number: US-BRISTOL-MYERS SQUIBB COMPANY-BMS-2016-008220

PATIENT
  Age: 79 Year
  Sex: Female

DRUGS (2)
  1. SPRYCEL [Suspect]
     Active Substance: DASATINIB
     Indication: CHRONIC MYELOID LEUKAEMIA
     Dosage: 70 MG, QD
     Route: 048
     Dates: start: 20151120
  2. SPRYCEL [Suspect]
     Active Substance: DASATINIB
     Indication: IRON DEFICIENCY ANAEMIA
     Route: 065

REACTIONS (2)
  - Product use issue [Unknown]
  - Flushing [Unknown]

NARRATIVE: CASE EVENT DATE: 20160201
